FAERS Safety Report 21332492 (Version 1)
Quarter: 2022Q3

REPORT INFORMATION
  Report Type: Report from Study
  Country: US (occurrence: None)
  Receive Date: 20220914
  Receipt Date: 20220914
  Transmission Date: 20221026
  Serious: Yes (Other)
  Sender: FDA-Public Use
  Company Number: 2022A310947

PATIENT
  Sex: Female

DRUGS (1)
  1. LYNPARZA [Suspect]
     Active Substance: OLAPARIB
     Indication: Fallopian tube cancer
     Route: 048
     Dates: start: 20220630

REACTIONS (5)
  - Full blood count decreased [Unknown]
  - Asthenia [Unknown]
  - Dizziness [Unknown]
  - Anaemia [Unknown]
  - Myalgia [Unknown]
